FAERS Safety Report 9433918 (Version 1)
Quarter: 2013Q3

REPORT INFORMATION
  Report Type: Spontaneous
  Country: IR (occurrence: IR)
  Receive Date: 20130801
  Receipt Date: 20130801
  Transmission Date: 20140515
  Serious: Yes (Other)
  Sender: FDA-Public Use
  Company Number: PHHY2013IR079233

PATIENT
  Sex: Female

DRUGS (2)
  1. METFORMIN [Suspect]
  2. CLOMIPHENE CITRATE SANDOZ [Suspect]
     Dosage: 150 MG, PER DAY FOR THREE MONTHS

REACTIONS (2)
  - Abortion spontaneous [Unknown]
  - Maternal exposure during pregnancy [Unknown]
